FAERS Safety Report 9126672 (Version 1)
Quarter: 2013Q1

REPORT INFORMATION
  Report Type: Spontaneous
  Country: US (occurrence: None)
  Receive Date: 20130130
  Receipt Date: 20130130
  Transmission Date: 20140127
  Serious: Yes (Death)
  Sender: FDA-Public Use
  Company Number: B0859481A

PATIENT
  Age: 37 Year
  Sex: Female

DRUGS (5)
  1. VENLAFAXINE HYDROCHLORIDE [Suspect]
     Dosage: UNK  /  UNK  /  ORAL?UNK
     Route: 048
  2. LAMOTRIGINE [Suspect]
     Dosage: UNK  /  UNK  /  ORAL?UNK
     Route: 048
  3. PROPRANOLOL HYDROCHLORIDE [Suspect]
     Dosage: UNK  /  UNK  /  ORAL?UNK
     Route: 048
  4. TRAZODONE [Suspect]
     Dosage: UNK  /  UNK  /  ORAL?UNK
     Route: 048
  5. ETHANOL (FORMULATION UNKNOWN) (ALCOHOL) [Suspect]
     Dosage: UNK  /  UNK  /  ORAL?UNK
     Route: 048

REACTIONS (3)
  - Cardio-respiratory arrest [None]
  - Completed suicide [None]
  - Intentional drug misuse [None]
